FAERS Safety Report 23975050 (Version 2)
Quarter: 2024Q3

REPORT INFORMATION
  Report Type: Spontaneous
  Country: US (occurrence: None)
  Receive Date: 20240614
  Receipt Date: 20240716
  Transmission Date: 20241017
  Serious: No
  Sender: ASTRAZENECA
  Company Number: 2024A135515

PATIENT
  Sex: Female

DRUGS (1)
  1. FASENRA [Suspect]
     Active Substance: BENRALIZUMAB
     Indication: Asthma
     Route: 042

REACTIONS (3)
  - Herpes zoster [Recovered/Resolved]
  - Urticaria [Recovered/Resolved]
  - Mouth ulceration [Recovered/Resolved]
